FAERS Safety Report 5370367-9 (Version None)
Quarter: 2007Q2

REPORT INFORMATION
  Report Type: 
  Country: None (occurrence: None)
  Receive Date: 20070626
  Receipt Date: 20070620
  Transmission Date: 20071010
  Serious: Yes (Hospitalization)
  Sender: FDA-Public Use
  Company Number: FR-BRISTOL-MYERS SQUIBB COMPANY-13823844

PATIENT
  Age: 75 Year
  Sex: Female

DRUGS (4)
  1. ELISOR TABS [Suspect]
     Route: 048
     Dates: start: 19990101
  2. SOTALOL HYDROCHLORIDE [Suspect]
     Route: 048
     Dates: start: 19990101
  3. IKOREL [Suspect]
     Route: 048
     Dates: start: 19990101
  4. ASPIRIN [Suspect]
     Route: 048
     Dates: start: 19990101

REACTIONS (1)
  - LICHENOID KERATOSIS [None]
